FAERS Safety Report 5570965-3 (Version None)
Quarter: 2007Q4

REPORT INFORMATION
  Report Type: 
  Country: None (occurrence: None)
  Receive Date: 20071219
  Receipt Date: 20071217
  Transmission Date: 20080405
  Serious: Yes (Hospitalization)
  Sender: FDA-Public Use
  Company Number: SPV1-2007-03949

PATIENT
  Age: 79 Year
  Sex: Female

DRUGS (7)
  1. LIALDA [Suspect]
     Indication: COLITIS
     Dosage: 3.6 G, 1X/DA:QD, ORAL
     Route: 048
     Dates: start: 20071203, end: 20071219
  2. LIALDA [Suspect]
     Indication: COLITIS ULCERATIVE
     Dosage: 3.6 G, 1X/DA:QD, ORAL
     Route: 048
     Dates: start: 20071203, end: 20071219
  3. LIALDA [Suspect]
     Indication: INFLAMMATORY BOWEL DISEASE
     Dosage: 3.6 G, 1X/DA:QD, ORAL
     Route: 048
     Dates: start: 20071203, end: 20071219
  4. FOSAMAX [Concomitant]
  5. ZOCOR [Concomitant]
  6. ACCUPRIL [Concomitant]
  7. LEVOXYL [Concomitant]

REACTIONS (2)
  - BILE DUCT STONE [None]
  - CHOLELITHIASIS [None]
